FAERS Safety Report 5815507-X (Version None)
Quarter: 2008Q3

REPORT INFORMATION
  Report Type: 
  Country: None (occurrence: None)
  Receive Date: 20080715
  Receipt Date: 20080707
  Transmission Date: 20090109
  Serious: Yes (Other)
  Sender: FDA-Public Use
  Company Number: CLOF-1000228

PATIENT

DRUGS (4)
  1. CLOLAR (CLFARABINE) SOLUTION FOR INFUSION [Suspect]
     Indication: ACUTE LEUKAEMIA
     Dosage: 30 MG/M2, QDX5, INTRAVENOUS
     Route: 042
  2. CYTARABINE [Suspect]
     Indication: ACUTE LEUKAEMIA
     Dosage: 1000 MG/M2, QDX5, INTRAVENOUS
     Route: 042
  3. CYCLOPHOSPHAMIDE [Suspect]
     Indication: ACUTE LEUKAEMIA
     Dosage: INTRAVENOUS
     Route: 042
  4. ANTITHYMOCYTE IMMUNOGLOBULIN (ANTITHYMOCYTE IMMUNOGLOBULIN) [Suspect]
     Indication: ACUTE LEUKAEMIA
     Dosage: INTRAVENOUS
     Route: 042

REACTIONS (4)
  - GRAFT VERSUS HOST DISEASE [None]
  - INFECTION [None]
  - MULTI-ORGAN FAILURE [None]
  - VENOOCCLUSIVE DISEASE [None]
